FAERS Safety Report 23970486 (Version 1)
Quarter: 2024Q2

REPORT INFORMATION
  Report Type: Spontaneous
  Country: GB (occurrence: GB)
  Receive Date: 20240613
  Receipt Date: 20240613
  Transmission Date: 20240716
  Serious: Yes (Other)
  Sender: FDA-Public Use
  Company Number: GB-002147023-NVSC2024GB113338

PATIENT
  Age: 81 Year
  Sex: Male
  Weight: 92 kg

DRUGS (2)
  1. LEQVIO [Suspect]
     Active Substance: INCLISIRAN SODIUM
     Indication: Blood cholesterol decreased
     Dosage: UNK
     Route: 065
     Dates: start: 20240209
  2. LEQVIO [Suspect]
     Active Substance: INCLISIRAN SODIUM
     Dosage: UNK
     Route: 065
     Dates: start: 20240508

REACTIONS (4)
  - Pemphigoid [Not Recovered/Not Resolved]
  - Hypersensitivity [Unknown]
  - Blister [Unknown]
  - Feeling cold [Unknown]

NARRATIVE: CASE EVENT DATE: 20240410
